FAERS Safety Report 7040585-2 (Version None)
Quarter: 2010Q4

REPORT INFORMATION
  Report Type: 
  Country: None (occurrence: None)
  Receive Date: 20101006
  Receipt Date: 20100921
  Transmission Date: 20110411
  Serious: Yes (Hospitalization, Other)
  Sender: FDA-Public Use
  Company Number: 017074

PATIENT
  Age: 55 Year
  Sex: Female

DRUGS (5)
  1. KEPPRA [Suspect]
     Indication: CONVULSION
     Dosage: 1500 MG BID ORAL
     Route: 048
     Dates: start: 20100501
  2. TEMODAR [Suspect]
     Dosage: JULY TO PRESENT ORAL
     Route: 048
  3. LACOSAMIDE [Concomitant]
  4. DECADRON [Concomitant]
  5. LEVOTHYROXINE SODIUM [Concomitant]

REACTIONS (3)
  - DRUG RASH WITH EOSINOPHILIA AND SYSTEMIC SYMPTOMS [None]
  - HEPATIC ENZYME INCREASED [None]
  - HYPERSENSITIVITY [None]
